FAERS Safety Report 14940453 (Version 1)
Quarter: 2018Q2

REPORT INFORMATION
  Report Type: Spontaneous
  Country: DE (occurrence: DE)
  Receive Date: 20180525
  Receipt Date: 20180525
  Transmission Date: 20180711
  Serious: Yes (Hospitalization)
  Sender: FDA-Public Use
  Company Number: DE-PFIZER INC-2018210085

PATIENT
  Age: 54 Year
  Sex: Male
  Weight: 68 kg

DRUGS (7)
  1. PANTOPRAZOL [Concomitant]
     Active Substance: PANTOPRAZOLE SODIUM
     Dosage: 40 MG, 1X/DAY (1-0-0-0)
     Route: 048
  2. AARANE [Concomitant]
     Active Substance: CROMOLYN SODIUM
     Dosage: UNK
     Route: 055
  3. VIANI FORTE [Concomitant]
     Active Substance: FLUTICASONE PROPIONATE\SALMETEROL XINAFOATE
     Dosage: 50
     Route: 055
  4. BEROTEC [Concomitant]
     Active Substance: FENOTEROL HYDROBROMIDE
     Dosage: 100 UG, AS NEEDED
     Route: 055
  5. AMLODIPINE BESILATE [Suspect]
     Active Substance: AMLODIPINE BESYLATE
     Dosage: 5 MG, AS NEEDED
     Route: 048
  6. EBRANTIL [Suspect]
     Active Substance: URAPIDIL
     Dosage: 60 MG, 2X/DAY (1-0-1-0)
     Route: 048
  7. RIVAROXABAN [Concomitant]
     Active Substance: RIVAROXABAN
     Dosage: 20 MG, 1X/DAY (1-0-0-0)
     Route: 048

REACTIONS (6)
  - Extra dose administered [Unknown]
  - Wound [Unknown]
  - Dizziness [Unknown]
  - Traumatic haemorrhage [Unknown]
  - Medication error [Unknown]
  - Fall [Unknown]

NARRATIVE: CASE EVENT DATE: 20150910
